FAERS Safety Report 6626252-5 (Version None)
Quarter: 2010Q1

REPORT INFORMATION
  Report Type: 
  Country: None (occurrence: None)
  Receive Date: 20100309
  Receipt Date: 20100309
  Transmission Date: 20100710
  Serious: Yes (Hospitalization)
  Sender: FDA-Public Use
  Company Number: None

PATIENT
  Age: 66 Year
  Sex: Female
  Weight: 88.4514 kg

DRUGS (1)
  1. ARIMIDEX [Suspect]
     Indication: BREAST CANCER
     Dosage: 1 MG EVERY DAY PO
     Route: 048
     Dates: start: 20080315, end: 20100308

REACTIONS (4)
  - CELLULITIS [None]
  - MYALGIA [None]
  - SKIN EXFOLIATION [None]
  - SKIN LESION [None]
